FAERS Safety Report 9747768 (Version 1)
Quarter: 2013Q4

REPORT INFORMATION
  Report Type: Spontaneous
  Country: FR (occurrence: None)
  Receive Date: 20131206
  Receipt Date: 20131206
  Transmission Date: 20140711
  Serious: Yes (Other)
  Sender: FDA-Public Use
  Company Number: 2013-003770

PATIENT
  Sex: Female
  Weight: 52 kg

DRUGS (1)
  1. ACTONEL [Suspect]
     Indication: OSTEOPOROSIS
     Dosage: 2 CD/MONTH
     Route: 048
     Dates: start: 20131001, end: 20131002

REACTIONS (14)
  - Hemiparesis [None]
  - Sensory disturbance [None]
  - Oedema peripheral [None]
  - Gingivitis [None]
  - Emotional distress [None]
  - Suicidal ideation [None]
  - Insomnia [None]
  - Nightmare [None]
  - Motor dysfunction [None]
  - Paresis [None]
  - Abulia [None]
  - Stupor [None]
  - Musculoskeletal discomfort [None]
  - Alopecia [None]
